FAERS Safety Report 5040750-X (Version None)
Quarter: 2006Q3

REPORT INFORMATION
  Report Type: 
  Country: None (occurrence: None)
  Receive Date: 20060703
  Receipt Date: 20050114
  Transmission Date: 20061208
  Serious: Yes (Death, Hospitalization)
  Sender: FDA-Public Use
  Company Number: PHHO2005JP01075

PATIENT
  Age: 81 Year
  Sex: Male
  Weight: 71 kg

DRUGS (8)
  1. DIOVAN [Suspect]
     Indication: HYPERTENSION
     Dosage: 80 MG, QD
     Route: 048
     Dates: start: 20030901
  2. SIGMART [Concomitant]
     Indication: ANGINA PECTORIS
     Dosage: 20 MG, QD
     Route: 048
     Dates: start: 19990520
  3. ISOSORBIDE MONONITRATE [Concomitant]
     Dosage: 40 MG, UNK
     Dates: start: 19990520
  4. ALLOPURINOL [Concomitant]
     Indication: HYPERURICAEMIA
     Dosage: 200 MG, UNK
     Dates: start: 19990520
  5. HERBESSER [Concomitant]
     Indication: ANGINA PECTORIS
     Dosage: 200 MG, UNK
     Dates: start: 19990520
  6. WARFARIN SODIUM [Concomitant]
     Indication: ANGINA PECTORIS
     Dosage: 2 MG, UNK
     Dates: start: 19990520
  7. MARZULENE [Concomitant]
     Dosage: 1 G, UNK
     Dates: start: 20020508
  8. BUFFERIN [Concomitant]

REACTIONS (17)
  - ANOREXIA [None]
  - ARTHRALGIA [None]
  - DEATH [None]
  - DYSURIA [None]
  - ELECTROCARDIOGRAM T WAVE AMPLITUDE DECREASED [None]
  - HAEMORRHAGE SUBCUTANEOUS [None]
  - HEADACHE [None]
  - INFLAMMATION [None]
  - MUSCULOSKELETAL PAIN [None]
  - NECK PAIN [None]
  - NEPHROLITHIASIS [None]
  - PAIN IN EXTREMITY [None]
  - PHARYNGITIS [None]
  - PHARYNGOLARYNGEAL PAIN [None]
  - PRODUCTIVE COUGH [None]
  - PYREXIA [None]
  - VOMITING [None]
